FAERS Safety Report 11138111 (Version 2)
Quarter: 2015Q3

REPORT INFORMATION
  Report Type: Report from Study
  Country: US (occurrence: US)
  Receive Date: 20150526
  Receipt Date: 20150819
  Transmission Date: 20151125
  Serious: Yes (Other)
  Sender: FDA-Public Use
  Company Number: US-SA-2014SA137537

PATIENT
  Age: 78 Year
  Sex: Female

DRUGS (4)
  1. AUBAGIO [Suspect]
     Active Substance: TERIFLUNOMIDE
     Indication: MULTIPLE SCLEROSIS
     Route: 048
  2. PREDNISONE. [Concomitant]
     Active Substance: PREDNISONE
     Route: 042
  3. XARELTO [Concomitant]
     Active Substance: RIVAROXABAN
  4. AUBAGIO [Suspect]
     Active Substance: TERIFLUNOMIDE
     Indication: MULTIPLE SCLEROSIS
     Route: 048
     Dates: start: 20140913

REACTIONS (24)
  - Burning sensation [Unknown]
  - Atrial fibrillation [Unknown]
  - Temperature intolerance [Unknown]
  - Pain in extremity [Not Recovered/Not Resolved]
  - Gait disturbance [Not Recovered/Not Resolved]
  - Cataract [Unknown]
  - Hypokinesia [Unknown]
  - Visual impairment [Unknown]
  - Asthenia [Recovering/Resolving]
  - Hyperhidrosis [Unknown]
  - Back pain [Unknown]
  - Activities of daily living impaired [Unknown]
  - Dyspnoea [Not Recovered/Not Resolved]
  - Drug ineffective [Unknown]
  - Confusional state [Unknown]
  - Pain [Unknown]
  - Crying [Unknown]
  - Hypoaesthesia [Recovering/Resolving]
  - Spinal column stenosis [Unknown]
  - Dry mouth [Unknown]
  - Condition aggravated [Not Recovered/Not Resolved]
  - Dysgeusia [Unknown]
  - Musculoskeletal discomfort [Unknown]
  - Gait disturbance [Unknown]

NARRATIVE: CASE EVENT DATE: 201507
